FAERS Safety Report 23826053 (Version 1)
Quarter: 2024Q2

REPORT INFORMATION
  Report Type: Spontaneous
  Country: US (occurrence: None)
  Receive Date: 20240506
  Receipt Date: 20240506
  Transmission Date: 20240716
  Serious: Yes (Death, Life-Threatening, Disabling)
  Sender: FDA-Public Use
  Company Number: None

PATIENT
  Age: 100 Year
  Sex: Female
  Weight: 48.15 kg

DRUGS (15)
  1. LEXAPRO [Suspect]
     Active Substance: ESCITALOPRAM OXALATE
     Indication: Anxiety
     Dosage: OTHER QUANTITY : 30 TABLET(S);?
     Route: 048
     Dates: start: 20240130, end: 20240213
  2. LEVOTHYROXINE [Concomitant]
     Active Substance: LEVOTHYROXINE\LEVOTHYROXINE SODIUM
  3. XARELTO [Concomitant]
     Active Substance: RIVAROXABAN
  4. LEXAPRO [Concomitant]
     Active Substance: ESCITALOPRAM OXALATE
  5. LORAZEPAM [Concomitant]
     Active Substance: LORAZEPAM
  6. TYLENOL [Concomitant]
     Active Substance: ACETAMINOPHEN
  7. GABA [Concomitant]
     Active Substance: HOMEOPATHICS
  8. THEANINE [Concomitant]
     Active Substance: THEANINE
  9. 5HTP [Concomitant]
  10. METHYLCOBALAMIN [Concomitant]
     Active Substance: METHYLCOBALAMIN
  11. FOLATE SODIUM [Concomitant]
     Active Substance: FOLATE SODIUM
  12. VITAMIN D3 [Concomitant]
     Active Substance: CHOLECALCIFEROL
  13. VITAMIN B COMPLEX [Concomitant]
     Active Substance: CYANOCOBALAMIN\DEXPANTHENOL\NIACINAMIDE\PYRIDOXINE HYDROCHLORIDE\RIBOFLAVIN 5^-PHOSPHATE SODIUM\THIA
  14. multi-vitamin/mineral [Concomitant]
  15. THIAMINE [Concomitant]
     Active Substance: THIAMINE

REACTIONS (8)
  - Decreased appetite [None]
  - Asthenia [None]
  - Dysstasia [None]
  - Gait disturbance [None]
  - Loss of control of legs [None]
  - Pain in extremity [None]
  - Arthralgia [None]
  - Muscle rigidity [None]

NARRATIVE: CASE EVENT DATE: 20240130
